FAERS Safety Report 14109253 (Version 2)
Quarter: 2017Q4

REPORT INFORMATION
  Report Type: Spontaneous
  Country: US (occurrence: US)
  Receive Date: 20171019
  Receipt Date: 20171027
  Transmission Date: 20180321
  Serious: No
  Sender: FDA-Public Use
  Company Number: US-MITSUBISHI TANABE PHARMA CORPORATION-MPE2017-0020988

PATIENT
  Age: 57 Year
  Sex: Female

DRUGS (11)
  1. GLYCOPYRROLATE. [Concomitant]
     Active Substance: GLYCOPYRROLATE
     Route: 065
  2. BERB FU/HERBAL COMPLEX #18 [Concomitant]
     Route: 065
  3. VITAMIN B12 [Concomitant]
     Active Substance: CYANOCOBALAMIN
     Route: 065
  4. VITAMIN D3 [Concomitant]
     Active Substance: CHOLECALCIFEROL
     Dosage: 8000 UNITS
     Route: 065
  5. FLUTICASONE. [Concomitant]
     Active Substance: FLUTICASONE
     Route: 048
  6. BOSWELLIA SERRATA EXTRACT [Concomitant]
     Active Substance: INDIAN FRANKINCENSE
     Route: 065
  7. RADICAVA [Suspect]
     Active Substance: EDARAVONE
     Indication: AMYOTROPHIC LATERAL SCLEROSIS
     Route: 041
     Dates: start: 20170919, end: 20170920
  8. ADRENAL CORTEX PORCINE [Concomitant]
     Route: 048
  9. ASPIRIN. [Concomitant]
     Active Substance: ASPIRIN
     Route: 065
  10. ALBUTEROL INHALER [Concomitant]
     Active Substance: ALBUTEROL
     Route: 065
  11. NUDEXTA [Concomitant]
     Dosage: 40-20MG
     Route: 048

REACTIONS (3)
  - Nausea [Recovering/Resolving]
  - Vomiting [Recovering/Resolving]
  - Abdominal pain [Not Recovered/Not Resolved]

NARRATIVE: CASE EVENT DATE: 20170920
